FAERS Safety Report 23884446 (Version 1)
Quarter: 2024Q2

REPORT INFORMATION
  Report Type: Spontaneous
  Country: US (occurrence: US)
  Receive Date: 20240522
  Receipt Date: 20240522
  Transmission Date: 20240715
  Serious: Yes (Hospitalization, Other)
  Sender: FDA-Public Use
  Company Number: US-PFIZER INC-2013056215

PATIENT
  Age: 61 Year
  Sex: Female

DRUGS (7)
  1. LEVOFLOXACIN [Suspect]
     Active Substance: LEVOFLOXACIN
     Indication: Arthritis bacterial
     Dosage: UNK
     Route: 048
  2. METOPROLOL TARTRATE [Suspect]
     Active Substance: METOPROLOL TARTRATE
     Indication: Hypertension
     Dosage: UNK
     Route: 048
  3. CEFEPIME HYDROCHLORIDE [Suspect]
     Active Substance: CEFEPIME HYDROCHLORIDE
     Indication: Arthritis bacterial
     Dosage: UNK
  4. TACROLIMUS [Concomitant]
     Active Substance: TACROLIMUS
     Indication: Liver transplant
     Dosage: UNK
     Route: 048
  5. DOCUSATE SODIUM [Concomitant]
     Active Substance: DOCUSATE SODIUM
     Dosage: UNK
     Route: 048
  6. COUMADIN [Concomitant]
     Active Substance: WARFARIN SODIUM
     Indication: Antiphospholipid syndrome
     Dosage: UNK
     Route: 048
  7. COUMADIN [Concomitant]
     Active Substance: WARFARIN SODIUM
     Indication: Budd-Chiari syndrome

REACTIONS (9)
  - Pseudolymphoma [Recovered/Resolved]
  - Lymphocytic infiltration [Recovered/Resolved]
  - Skin exfoliation [Recovered/Resolved]
  - Pruritus [Recovered/Resolved]
  - Erythema [Recovered/Resolved]
  - Eczema [Recovered/Resolved]
  - Dermatitis [Recovered/Resolved]
  - Rash macular [Recovered/Resolved]
  - Rash [Recovered/Resolved]
